FAERS Safety Report 12695103 (Version 3)
Quarter: 2016Q3

REPORT INFORMATION
  Report Type: Report from Study
  Country: JP (occurrence: JP)
  Receive Date: 20160829
  Receipt Date: 20160927
  Transmission Date: 20161109
  Serious: Yes (Hospitalization)
  Sender: FDA-Public Use
  Company Number: JP-JNJFOC-20160824091

PATIENT
  Age: 1 Year
  Sex: Female

DRUGS (8)
  1. REMICADE [Suspect]
     Active Substance: INFLIXIMAB
     Indication: KAWASAKI^S DISEASE
     Route: 042
     Dates: start: 20160104, end: 20160104
  2. PHYSIO 140 [Concomitant]
     Indication: KAWASAKI^S DISEASE
     Route: 042
  3. SOLDEM 3A [Concomitant]
     Active Substance: CARBOHYDRATES\POTASSIUM CHLORIDE\SODIUM CHLORIDE\SODIUM LACTATE
     Indication: KAWASAKI^S DISEASE
     Route: 042
  4. VALTREX [Concomitant]
     Active Substance: VALACYCLOVIR HYDROCHLORIDE
     Indication: KAPOSI^S VARICELLIFORM ERUPTION
     Route: 048
     Dates: start: 20160119, end: 20160121
  5. VENOGLOBULIN IH [Suspect]
     Active Substance: HUMAN IMMUNOGLOBULIN G
     Indication: KAWASAKI^S DISEASE
     Route: 042
     Dates: start: 20151231, end: 20160101
  6. VENOGLOBULIN IH [Suspect]
     Active Substance: HUMAN IMMUNOGLOBULIN G
     Indication: KAWASAKI^S DISEASE
     Route: 042
     Dates: start: 20160102, end: 20160103
  7. SEISHOKU [Concomitant]
     Active Substance: SODIUM CHLORIDE
     Indication: KAWASAKI^S DISEASE
     Route: 042
  8. ASPIRIN. [Concomitant]
     Active Substance: ASPIRIN
     Route: 065
     Dates: start: 20151231

REACTIONS (4)
  - Hepatitis B core antibody positive [Unknown]
  - Gianotti-Crosti syndrome [Recovered/Resolved]
  - Hepatitis B surface antibody positive [Unknown]
  - Hepatitis B antigen positive [Unknown]

NARRATIVE: CASE EVENT DATE: 20160121
